FAERS Safety Report 7783456-6 (Version None)
Quarter: 2011Q3

REPORT INFORMATION
  Report Type: 
  Country: None (occurrence: None)
  Receive Date: 20110928
  Receipt Date: 20110928
  Transmission Date: 20111222
  Serious: Yes (Other)
  Sender: FDA-Public Use
  Company Number: None

PATIENT
  Age: 32 Year
  Sex: Female
  Weight: 54.431 kg

DRUGS (1)
  1. LAMOTRIGINE [Suspect]
     Indication: PARTIAL SEIZURES
     Dosage: 200 MG
     Route: 048
     Dates: start: 20110913, end: 20111124

REACTIONS (2)
  - EXTRAOCULAR MUSCLE DISORDER [None]
  - MUSCLE CONTRACTIONS INVOLUNTARY [None]
